FAERS Safety Report 7198256-8 (Version None)
Quarter: 2010Q4

REPORT INFORMATION
  Report Type: 
  Country: None (occurrence: None)
  Receive Date: 20101227
  Receipt Date: 20101213
  Transmission Date: 20110411
  Serious: Yes (Other)
  Sender: FDA-Public Use
  Company Number: PHHY2010US84945

PATIENT

DRUGS (2)
  1. RECLAST [Suspect]
     Dosage: UNK
  2. CORTICOSTEROID NOS [Concomitant]

REACTIONS (1)
  - KNEE ARTHROPLASTY [None]
